FAERS Safety Report 14793934 (Version 2)
Quarter: 2018Q2

REPORT INFORMATION
  Report Type: Spontaneous
  Country: FR (occurrence: FR)
  Receive Date: 20180423
  Receipt Date: 20180618
  Transmission Date: 20180711
  Serious: Yes (Hospitalization)
  Sender: FDA-Public Use
  Company Number: FR-ALLERGAN-1822173US

PATIENT
  Age: 74 Year
  Sex: Male

DRUGS (8)
  1. DETENSIEL [Concomitant]
     Active Substance: BISOPROLOL FUMARATE
     Indication: PRODUCT USED FOR UNKNOWN INDICATION
     Dosage: UNK
     Route: 065
  2. TRIPTORELIN PAMOATE UNK [Suspect]
     Active Substance: TRIPTORELIN PAMOATE
     Indication: PROSTATE CANCER
     Dosage: UNK
     Dates: start: 20180226, end: 20180226
  3. PLAVIX [Concomitant]
     Active Substance: CLOPIDOGREL BISULFATE
     Indication: PRODUCT USED FOR UNKNOWN INDICATION
     Dosage: UNK
     Route: 065
     Dates: start: 20180304
  4. TRIPTORELIN PAMOATE UNK [Suspect]
     Active Substance: TRIPTORELIN PAMOATE
     Dosage: 1 DF, CYCLICAL
     Route: 058
     Dates: start: 201711, end: 201711
  5. SILODOSIN - BP [Suspect]
     Active Substance: SILODOSIN
     Indication: URINARY TRACT OBSTRUCTION
     Dosage: UNK
     Route: 048
     Dates: start: 20180301, end: 20180304
  6. ZOCOR [Concomitant]
     Active Substance: SIMVASTATIN
     Indication: PRODUCT USED FOR UNKNOWN INDICATION
     Dosage: UNK
     Route: 065
     Dates: start: 20180304
  7. INDOMETACINE [Suspect]
     Active Substance: INDOMETHACIN
     Indication: PAIN
     Dosage: 1 DF, PRN
     Route: 048
     Dates: start: 20180302, end: 20180305
  8. TRIATEC [Concomitant]
     Indication: PRODUCT USED FOR UNKNOWN INDICATION
     Dosage: UNK
     Route: 065
     Dates: start: 20180304

REACTIONS (2)
  - Eosinophilia [Recovering/Resolving]
  - Toxic skin eruption [Recovering/Resolving]

NARRATIVE: CASE EVENT DATE: 201803
